FAERS Safety Report 14636318 (Version 3)
Quarter: 2021Q2

REPORT INFORMATION
  Report Type: Report from Study
  Country: None (occurrence: JP)
  Receive Date: 20180314
  Receipt Date: 20210614
  Transmission Date: 20210716
  Serious: Yes (Life-Threatening, Hospitalization, Other)
  Sender: FDA-Public Use
  Company Number: JP-CLINIGEN GROUP PLC/ CLINIGEN HEALTHCARE LTD-JP-CLGN-18-00085

PATIENT
  Age: 79 Year
  Sex: Female
  Weight: 49.1 kg

DRUGS (26)
  1. ENDOXAN [Suspect]
     Active Substance: CYCLOPHOSPHAMIDE
     Indication: DIFFUSE LARGE B-CELL LYMPHOMA
     Route: 042
     Dates: start: 20151215, end: 20151215
  2. SAVENE [Suspect]
     Active Substance: DEXRAZOXANE
     Route: 041
     Dates: start: 20151217, end: 20151217
  3. THERARUBICIN [Suspect]
     Active Substance: PIRARUBICIN HYDROCHLORIDE
     Indication: DIFFUSE LARGE B-CELL LYMPHOMA
     Route: 042
     Dates: start: 20151215, end: 20151215
  4. FEBURIC [Concomitant]
     Active Substance: FEBUXOSTAT
     Indication: PROPHYLAXIS
     Route: 048
  5. LANSOPRAZOLE OD [Concomitant]
     Active Substance: LANSOPRAZOLE
     Indication: PROPHYLAXIS
     Route: 048
  6. MEYLON [Concomitant]
     Active Substance: SODIUM BICARBONATE
     Route: 042
     Dates: end: 20151216
  7. ONCOVIN [Suspect]
     Active Substance: VINCRISTINE SULFATE
     Indication: DIFFUSE LARGE B-CELL LYMPHOMA
     Route: 042
     Dates: start: 20151215, end: 20151215
  8. PREDONINE [Suspect]
     Active Substance: PREDNISOLONE
     Indication: PRODUCT USED FOR UNKNOWN INDICATION
     Route: 048
     Dates: start: 20151215
  9. DERMOVATE [Concomitant]
     Active Substance: CLOBETASOL
     Indication: INFUSION SITE EXTRAVASATION
     Route: 003
     Dates: start: 20151215, end: 20151215
  10. BARACLUDE [Concomitant]
     Active Substance: ENTECAVIR
     Indication: PROPHYLAXIS
     Route: 048
  11. MEYLON [Concomitant]
     Active Substance: SODIUM BICARBONATE
     Indication: PROPHYLAXIS
     Route: 042
     Dates: end: 20151216
  12. NEUTROGIN [Suspect]
     Active Substance: LENOGRASTIM
     Indication: MYELOSUPPRESSION
     Route: 065
     Dates: start: 20151225, end: 20151228
  13. MAGNESIUM OXIDE. [Concomitant]
     Active Substance: MAGNESIUM OXIDE
     Indication: PRODUCT USED FOR UNKNOWN INDICATION
     Route: 048
  14. AZILVA [Concomitant]
     Active Substance: AZILSARTAN KAMEDOXOMIL
     Indication: HYPERTENSION
     Route: 048
  15. SAVENE [Suspect]
     Active Substance: DEXRAZOXANE
     Indication: INFUSION SITE EXTRAVASATION
     Route: 042
     Dates: start: 20151215, end: 20151216
  16. GRANISETRON [Suspect]
     Active Substance: GRANISETRON
     Indication: PROPHYLAXIS
     Route: 042
     Dates: start: 20151215, end: 20151215
  17. DISTILLED WATER [Concomitant]
     Indication: MEDICATION DILUTION
     Route: 041
     Dates: start: 20151215, end: 20151217
  18. EMEND [Suspect]
     Active Substance: APREPITANT
     Indication: PROPHYLAXIS
     Route: 048
     Dates: start: 20151215, end: 20151215
  19. LASIX [Suspect]
     Active Substance: FUROSEMIDE
     Indication: PROPHYLAXIS
     Route: 042
     Dates: start: 20151215, end: 20151217
  20. EDIROL [Concomitant]
     Active Substance: ELDECALCITOL
     Indication: PRODUCT USED FOR UNKNOWN INDICATION
     Route: 048
     Dates: end: 20150106
  21. RITUXAN [Suspect]
     Active Substance: RITUXIMAB
     Indication: PRODUCT USED FOR UNKNOWN INDICATION
     Route: 041
  22. LIDOCAINE HYDROCHLORIDE. [Concomitant]
     Active Substance: LIDOCAINE HYDROCHLORIDE
     Indication: INFUSION SITE EXTRAVASATION
     Route: 065
     Dates: start: 20151215, end: 20151215
  23. GLUCOSE [Concomitant]
     Active Substance: DEXTROSE
     Indication: MEDICATION DILUTION
     Route: 041
     Dates: start: 20151215, end: 20151217
  24. HEPARIN [Concomitant]
     Active Substance: HEPARIN SODIUM
     Indication: PROPHYLAXIS
     Route: 065
     Dates: end: 20151210
  25. RINDERON [Concomitant]
     Indication: INFUSION SITE EXTRAVASATION
     Route: 065
     Dates: start: 20151215, end: 20151215
  26. SOLDEM 1 [Concomitant]
     Active Substance: DEXTROSE\SODIUM CHLORIDE\SODIUM LACTATE
     Indication: PROPHYLAXIS
     Route: 041
     Dates: end: 20151217

REACTIONS (8)
  - Myelosuppression [Recovering/Resolving]
  - Blood creatinine increased [Recovering/Resolving]
  - Aspartate aminotransferase increased [Recovered/Resolved]
  - Back pain [Recovering/Resolving]
  - Basophil count increased [Recovering/Resolving]
  - Constipation [Recovering/Resolving]
  - Hyperkalaemia [Recovered/Resolved]
  - Hypertension [Recovered/Resolved]

NARRATIVE: CASE EVENT DATE: 20151216
